FAERS Safety Report 9516578 (Version 1)
Quarter: 2013Q1

REPORT INFORMATION
  Report Type: Spontaneous
  Country: US (occurrence: None)
  Receive Date: 20130305
  Receipt Date: 20130305
  Transmission Date: 20140127
  Serious: Yes (Other)
  Sender: FDA-Public Use
  Company Number: 163-21880-12080643

PATIENT
  Age: 77 Year
  Sex: Male

DRUGS (15)
  1. REVLIMID [Suspect]
     Indication: PLASMA CELL MYELOMA
     Route: 048
     Dates: start: 20110308, end: 20120229
  2. ACETAMINOPHEN (PARACETAMOL) [Concomitant]
  3. ALBUTEROL SULFATE HFA (SALBUTAMOL) [Concomitant]
  4. ALLERTEC (CETIRIZINE HYDROCHLORIDE) [Concomitant]
  5. AVODART (DUTASTERIDE) [Concomitant]
  6. CALCIUM + D 9 (OS-CAL) [Concomitant]
  7. DEXAMETHASONE (DEXAMETHASONE) [Concomitant]
  8. KLOR-CON (POTASSIUIM CHLORIDE) [Concomitant]
  9. LIPITOR (ATORVASTATIN) [Concomitant]
  10. OMEPRAZOLE (OMEPRAZOLE) [Concomitant]
  11. SINGULAIR [Concomitant]
  12. TAMSULOSIN HCL (TAMSULOSIN HYDROCHLORIDE) [Concomitant]
  13. TRIAMTERENE-HCTZ (DYAZIDE) [Concomitant]
  14. VALACYCLOVIR HCL (VALACICLOVIR HYDROCHLORIDE) [Concomitant]
  15. VITAMIN C [Concomitant]

REACTIONS (2)
  - Pancytopenia [None]
  - No therapeutic response [None]
